FAERS Safety Report 15983187 (Version 4)
Quarter: 2019Q2

REPORT INFORMATION
  Report Type: Spontaneous
  Country: CN (occurrence: CN)
  Receive Date: 20190220
  Receipt Date: 20190530
  Transmission Date: 20190711
  Serious: Yes (Hospitalization, Other)
  Sender: FDA-Public Use
  Company Number: CN-LUPIN PHARMACEUTICALS INC.-2019-00964

PATIENT
  Age: 69 Year
  Sex: Male

DRUGS (14)
  1. COENZYME Q10 [Concomitant]
     Active Substance: UBIDECARENONE
     Indication: PRODUCT USED FOR UNKNOWN INDICATION
     Dosage: UNK
     Route: 065
  2. SIMVASTATIN. [Suspect]
     Active Substance: SIMVASTATIN
     Indication: PRODUCT USED FOR UNKNOWN INDICATION
     Dosage: 40 MILLIGRAM, QD (EVERY NIGHT)
     Route: 048
     Dates: start: 20081003, end: 20180814
  3. LINAGLIPTIN [Interacting]
     Active Substance: LINAGLIPTIN
     Indication: PRODUCT USED FOR UNKNOWN INDICATION
     Dosage: 05 MILLIGRAM, QD
     Route: 048
     Dates: start: 20170906
  4. INSULIN GLARGINE [Concomitant]
     Active Substance: INSULIN GLARGINE
     Indication: TYPE 2 DIABETES MELLITUS
     Dosage: 08 UNIT, QD (AT NIGHT)
     Route: 065
  5. METFORMIN [Concomitant]
     Active Substance: METFORMIN HYDROCHLORIDE
     Indication: TYPE 2 DIABETES MELLITUS
     Dosage: 250 MILLIGRAM, BID
     Route: 065
  6. LOSARTAN. [Concomitant]
     Active Substance: LOSARTAN
     Indication: PRODUCT USED FOR UNKNOWN INDICATION
     Dosage: 100 MILLIGRAM, QD
     Route: 065
  7. VITAMIN B COMPLEX [Concomitant]
     Active Substance: CYANOCOBALAMIN\DEXPANTHENOL\NIACINAMIDE\PYRIDOXINE HYDROCHLORIDE\RIBOFLAVIN 5^-PHOSPHATE SODIUM\THIAMINE HYDROCHLORIDE\VITAMIN B COMPLEX
     Indication: PRODUCT USED FOR UNKNOWN INDICATION
     Dosage: UNK
     Route: 065
  8. MAGNESIUM [Concomitant]
     Active Substance: MAGNESIUM
     Indication: PRODUCT USED FOR UNKNOWN INDICATION
     Dosage: UNK
     Route: 065
  9. CALCIUM [Concomitant]
     Active Substance: CALCIUM
     Indication: PRODUCT USED FOR UNKNOWN INDICATION
     Dosage: UNK
     Route: 065
  10. TERAZOSIN [Concomitant]
     Active Substance: TERAZOSIN\TERAZOSIN HYDROCHLORIDE
     Indication: PRODUCT USED FOR UNKNOWN INDICATION
     Dosage: 01 MILLIGRAM, QD (EVERY NIGHT)
     Route: 065
  11. SWIETENIA MACROPHYLLA [Concomitant]
     Indication: PHYTOTHERAPY
     Dosage: UNK (FOR 3 TO 4 MONTHS)
     Route: 065
  12. GYNURA DIVARICATA [Concomitant]
     Indication: PHYTOTHERAPY
     Dosage: UNK (FOR 1 YEAR)
     Route: 065
  13. STEVIA REBAUDIANA [Interacting]
     Active Substance: HERBALS\STEVIA REBAUDIUNA LEAF
     Indication: PHYTOTHERAPY
     Dosage: 4-5 PIECES PER DAY (HERBAL PIECE)
     Route: 048
     Dates: start: 201806, end: 20180814
  14. ZINC. [Concomitant]
     Active Substance: ZINC
     Indication: PRODUCT USED FOR UNKNOWN INDICATION
     Dosage: UNK
     Route: 065

REACTIONS (4)
  - Herbal interaction [Unknown]
  - Rhabdomyolysis [Recovering/Resolving]
  - Drug interaction [Unknown]
  - Renal impairment [Unknown]

NARRATIVE: CASE EVENT DATE: 2018
